FAERS Safety Report 23884370 (Version 2)
Quarter: 2024Q4

REPORT INFORMATION
  Report Type: Spontaneous
  Country: US (occurrence: US)
  Receive Date: 20240522
  Receipt Date: 20241001
  Transmission Date: 20250115
  Serious: No
  Sender: CATALYST PHARMA
  Company Number: US-CATALYST PHARMACEUTICALS-US-CATA-24-00341

PATIENT
  Sex: Male
  Weight: 27.211 kg

DRUGS (7)
  1. AGAMREE [Suspect]
     Active Substance: VAMOROLONE
     Indication: Duchenne muscular dystrophy
     Dosage: 4.4 ML PER DAY
     Route: 048
     Dates: start: 20240319, end: 20240404
  2. AGAMREE [Suspect]
     Active Substance: VAMOROLONE
     Dosage: 4.5 ML ONCE PER DAY
     Route: 048
     Dates: start: 20240405, end: 202404
  3. AGAMREE [Suspect]
     Active Substance: VAMOROLONE
     Dosage: 4 ML ONCE PER DAY
     Route: 048
     Dates: start: 20240411
  4. HYDROCODONE [Concomitant]
     Active Substance: HYDROCODONE
     Indication: Pain
     Dosage: 5/325 MG EVERY 4 HOURS AS NEEDED
     Route: 065
  5. TYLENOL XR [Concomitant]
     Indication: Product used for unknown indication
     Dosage: 500 MG DAILY
     Route: 065
  6. TUMS ULTRA [Concomitant]
     Active Substance: CALCIUM CARBONATE
     Indication: Product used for unknown indication
     Dosage: 1000 MG 3 X DAY AFTER MEALS
     Route: 065
  7. MIRALAX [Concomitant]
     Active Substance: POLYETHYLENE GLYCOL 3350
     Indication: Product used for unknown indication
     Dosage: 17GR (HE ONLY TAKES HALF CAPSULE A DAY)
     Route: 065

REACTIONS (6)
  - Rash [Recovered/Resolved]
  - Nausea [Recovered/Resolved]
  - Skin burning sensation [Unknown]
  - Skin exfoliation [Unknown]
  - Weight decreased [Unknown]
  - Headache [Recovered/Resolved]

NARRATIVE: CASE EVENT DATE: 20240101
